FAERS Safety Report 8213931-1 (Version None)
Quarter: 2012Q1

REPORT INFORMATION
  Report Type: 
  Country: None (occurrence: None)
  Receive Date: 20120316
  Receipt Date: 20120305
  Transmission Date: 20120608
  Serious: Yes (Death)
  Sender: FDA-Public Use
  Company Number: HR-ACCORD-012673

PATIENT

DRUGS (4)
  1. TACROLIMUS [Suspect]
  2. MYCOPHENOLATE MOFETIL [Suspect]
  3. IMMUNE GLOBULIN NOS [Suspect]
  4. ANTIFUNGALS [Concomitant]

REACTIONS (1)
  - MULTI-ORGAN FAILURE [None]
